FAERS Safety Report 20748033 (Version 1)
Quarter: 2022Q2

REPORT INFORMATION
  Report Type: Spontaneous
  Country: CN (occurrence: CN)
  Receive Date: 20220426
  Receipt Date: 20220426
  Transmission Date: 20220721
  Serious: Yes (Other)
  Sender: FDA-Public Use
  Company Number: CN-BAXTER-2022BAX008966

PATIENT
  Age: 38 Year
  Sex: Female
  Weight: 100 kg

DRUGS (6)
  1. CYCLOPHOSPHAMIDE [Suspect]
     Active Substance: CYCLOPHOSPHAMIDE
     Indication: Breast cancer female
     Dosage: 1 TO 3 CYCLES OF CHEMOTHERAPY WITH AC REGIMEN
     Route: 041
  2. CYCLOPHOSPHAMIDE [Suspect]
     Active Substance: CYCLOPHOSPHAMIDE
     Indication: Breast cancer stage II
     Dosage: 4TH CYCLE OF CHEMOTHERAPY WITH AC REGIMEN
     Route: 041
     Dates: start: 20211222, end: 20211222
  3. CYCLOPHOSPHAMIDE [Suspect]
     Active Substance: CYCLOPHOSPHAMIDE
     Dosage: DOSE RE-INTRODUCED
     Route: 041
  4. PIRARUBICIN HYDROCHLORIDE [Suspect]
     Active Substance: PIRARUBICIN HYDROCHLORIDE
     Indication: Breast cancer female
     Dosage: DOSAGE FORM: LYOPHILIZED DRUG PRODUCT, 1 TO 3 CYCLES OF CHEMOTHERAPY WITH AC REGIMEN
     Route: 041
  5. PIRARUBICIN HYDROCHLORIDE [Suspect]
     Active Substance: PIRARUBICIN HYDROCHLORIDE
     Indication: Breast cancer stage II
     Dosage: DOSAGE FORM: LYOPHILIZED DRUG PRODUCT, 4TH CYCLE OF CHEMOTHERAPY WITH AC REGIMEN
     Route: 041
     Dates: start: 20211222, end: 20211222
  6. PIRARUBICIN HYDROCHLORIDE [Suspect]
     Active Substance: PIRARUBICIN HYDROCHLORIDE
     Dosage: DOSE RE-INTRODUCED, DOSAGE FORM: LYOPHILIZED DRUG PRODUCT
     Route: 041

REACTIONS (3)
  - Dysphagia [Recovering/Resolving]
  - Nausea [Recovering/Resolving]
  - Vomiting [Recovering/Resolving]

NARRATIVE: CASE EVENT DATE: 20211223
